FAERS Safety Report 10416228 (Version 1)
Quarter: 2014Q3

REPORT INFORMATION
  Report Type: Spontaneous
  Country: DE (occurrence: DE)
  Receive Date: 20140828
  Receipt Date: 20140828
  Transmission Date: 20150326
  Serious: Yes (Other)
  Sender: FDA-Public Use
  Company Number: DE-UCBSA-2014009648

PATIENT
  Age: 21 Year
  Sex: Female

DRUGS (4)
  1. KEPPRA [Suspect]
     Active Substance: LEVETIRACETAM
     Indication: JUVENILE MYOCLONIC EPILEPSY
     Dosage: 1000 MG, 2X/DAY (BID)
     Route: 048
  2. ORFIRIL [Suspect]
     Active Substance: VALPROIC ACID
     Indication: JUVENILE MYOCLONIC EPILEPSY
     Dosage: UNK UNK, 2X/DAY (BID), 500-0-800 MG/DAY
     Route: 048
     Dates: start: 20120922
  3. TOPAMAX [Suspect]
     Active Substance: TOPIRAMATE
     Indication: JUVENILE MYOCLONIC EPILEPSY
     Dosage: 75 MG, 2X/DAY (BID)
     Route: 048
     Dates: start: 201211
  4. FRISIUM [Suspect]
     Active Substance: CLOBAZAM
     Indication: JUVENILE MYOCLONIC EPILEPSY
     Dosage: UNK
     Route: 048
     Dates: start: 201209, end: 201211

REACTIONS (4)
  - Pre-eclampsia [Unknown]
  - Convulsion [Unknown]
  - Maternal exposure during pregnancy [Unknown]
  - Premature delivery [Unknown]

NARRATIVE: CASE EVENT DATE: 2012
